FAERS Safety Report 5154489-3 (Version None)
Quarter: 2006Q4

REPORT INFORMATION
  Report Type: 
  Country: None (occurrence: None)
  Receive Date: 20061114
  Receipt Date: 20061031
  Transmission Date: 20070319
  Serious: Yes (Other)
  Sender: FDA-Public Use
  Company Number: NLWYE1104040OCT06

PATIENT
  Age: 65 Year
  Sex: Female

DRUGS (1)
  1. EFFEXOR XR [Suspect]
     Indication: DEPRESSION
     Dosage: 75 MG 1X PER 1 DAY
     Dates: start: 20040611, end: 20060929

REACTIONS (3)
  - CEREBRAL INFARCTION [None]
  - SWOLLEN TONGUE [None]
  - TONGUE DISCOLOURATION [None]
